FAERS Safety Report 5847447-4 (Version None)
Quarter: 2008Q3

REPORT INFORMATION
  Report Type: 
  Country: None (occurrence: None)
  Receive Date: 20080813
  Receipt Date: 20080729
  Transmission Date: 20090109
  Serious: Yes (Hospitalization)
  Sender: FDA-Public Use
  Company Number: 2008-181473-NL

PATIENT
  Age: 24 Year
  Sex: Female

DRUGS (7)
  1. DANAPAROID SODIUM [Suspect]
     Indication: THROMBOSIS PROPHYLAXIS
     Dosage: 750 ANTI_XA BID SUBCUTANEOUS
     Route: 058
  2. DALTEPARIN SODIUM [Suspect]
     Indication: THROMBOSIS PROPHYLAXIS
     Dosage: 12000 IU
  3. FONDAPARINUX [Suspect]
     Indication: THROMBOSIS PROPHYLAXIS
     Dosage: 5 MG SUBCUTANEOUS
     Route: 058
  4. ENOXAPARIN SODIUM [Suspect]
     Indication: THROMBOSIS PROPHYLAXIS
     Dosage: 60 MG BID SUBCUTANEOUS
     Route: 058
  5. ACETYLSALICYLIC ACID SRT [Concomitant]
  6. HYDROCORTISONE [Concomitant]
  7. BETAMETHASONE [Concomitant]

REACTIONS (11)
  - DISEASE RECURRENCE [None]
  - DRUG EXPOSURE DURING PREGNANCY [None]
  - DRUG HYPERSENSITIVITY [None]
  - INJECTION SITE DISCOLOURATION [None]
  - INJECTION SITE ERYTHEMA [None]
  - INJECTION SITE MACULE [None]
  - INJECTION SITE PRURITUS [None]
  - PANCYTOPENIA [None]
  - PLATELET COUNT DECREASED [None]
  - SYSTEMIC LUPUS ERYTHEMATOSUS [None]
  - TYPE IV HYPERSENSITIVITY REACTION [None]
